FAERS Safety Report 11281338 (Version 2)
Quarter: 2015Q3

REPORT INFORMATION
  Report Type: Spontaneous
  Country: US (occurrence: US)
  Receive Date: 20150717
  Receipt Date: 20150904
  Transmission Date: 20151125
  Serious: Yes (Death, Hospitalization, Other)
  Sender: FDA-Public Use
  Company Number: US-AMGEN-USASP2015071468

PATIENT
  Age: 63 Year
  Sex: Male
  Weight: 69.39 kg

DRUGS (3)
  1. VP-16 [Concomitant]
     Active Substance: ETOPOSIDE
     Dosage: 186 MG, Q3WK DAY 1 - 3
     Route: 042
     Dates: start: 20150527, end: 20150529
  2. NEULASTA [Suspect]
     Active Substance: PEGFILGRASTIM
     Indication: PRODUCT USED FOR UNKNOWN INDICATION
     Dosage: 6 MG, Q3WK PER CHEMO
     Route: 058
     Dates: start: 20150601, end: 20150601
  3. CARBOPLATIN. [Concomitant]
     Active Substance: CARBOPLATIN
     Dosage: 186 MG, Q3WK D1
     Dates: start: 20150527, end: 20150527

REACTIONS (4)
  - Respiratory failure [Fatal]
  - Non-small cell lung cancer [Unknown]
  - Pneumonia [Unknown]
  - Atrial fibrillation [Unknown]
